FAERS Safety Report 5987684-1 (Version None)
Quarter: 2008Q4

REPORT INFORMATION
  Report Type: 
  Country: None (occurrence: None)
  Receive Date: 20081209
  Receipt Date: 20081125
  Transmission Date: 20090506
  Serious: No
  Sender: FDA-Public Use
  Company Number: US-B.I. PHARMACEUTICALS,INC./RIDGEFIELD-2008-BP-17795BP

PATIENT
  Sex: Female

DRUGS (3)
  1. MICARDIS [Suspect]
     Indication: HYPERTENSION
     Route: 048
     Dates: start: 20070101, end: 20070901
  2. LABETEROL [Suspect]
     Indication: HYPERTENSION
     Dates: start: 20070101, end: 20070901
  3. LISINOPRIL [Suspect]
     Indication: HYPERTENSION
     Dates: start: 20070101, end: 20070901

REACTIONS (1)
  - HEARING IMPAIRED [None]
